FAERS Safety Report 8485733-2 (Version None)
Quarter: 2012Q3

REPORT INFORMATION
  Report Type: 
  Country: None (occurrence: None)
  Receive Date: 20120703
  Receipt Date: 20120626
  Transmission Date: 20120928
  Serious: Yes (Hospitalization, Disabling)
  Sender: FDA-Public Use
  Company Number: DE-B.I. PHARMACEUTICALS,INC./RIDGEFIELD-2011-DE-06558DE

PATIENT
  Sex: Male
  Weight: 95 kg

DRUGS (10)
  1. TORSEMIDE [Concomitant]
     Dosage: 20 MG
  2. BISOPROLOL FUMARATE [Concomitant]
     Dosage: 5 MG
  3. LYRICA [Concomitant]
     Dosage: 150 MG
  4. PRADAXA [Suspect]
     Dosage: 330 MG
     Route: 048
     Dates: start: 20110926, end: 20110930
  5. AMITRIPTYLINE HCL [Concomitant]
     Dosage: 100 MG
  6. ALLOPURINOL [Concomitant]
     Dosage: 100 MG
  7. LACTULOSE [Concomitant]
     Dosage: 30 ANZ
  8. OMEPRAZOLE [Concomitant]
     Dosage: 80 MG
  9. MST 10 RET [Concomitant]
     Dosage: 20 MG
  10. GETZAR [Concomitant]
     Dosage: 1 ANZ

REACTIONS (5)
  - PRURITUS GENERALISED [None]
  - SKIN REACTION [None]
  - OEDEMA PERIPHERAL [None]
  - SKIN HAEMORRHAGE [None]
  - BLISTER [None]
